FAERS Safety Report 9735149 (Version 7)
Quarter: 2014Q1

REPORT INFORMATION
  Report Type: Spontaneous
  Country: JP (occurrence: JP)
  Receive Date: 20131206
  Receipt Date: 20140221
  Transmission Date: 20141002
  Serious: Yes (Other)
  Sender: FDA-Public Use
  Company Number: JP-PFIZER INC-2013292390

PATIENT
  Age: 51 Year
  Sex: Male
  Weight: 46.6 kg

DRUGS (5)
  1. TORISEL [Suspect]
     Indication: RENAL CELL CARCINOMA
     Dosage: 25 MG, WEEKLY
     Route: 041
     Dates: start: 20130725, end: 20130920
  2. CELECOX [Suspect]
     Indication: PYREXIA
     Dosage: 100 MG, 2X/DAY
     Route: 048
     Dates: start: 20131001, end: 20131013
  3. CELECOX [Suspect]
     Indication: INFLAMMATION
  4. BAKTAR [Suspect]
     Indication: INTERSTITIAL LUNG DISEASE
     Dosage: UNK
     Route: 048
     Dates: start: 20131004, end: 20131013
  5. BAKTAR [Suspect]
     Indication: PNEUMOCYSTIS JIROVECII PNEUMONIA

REACTIONS (3)
  - Interstitial lung disease [Recovering/Resolving]
  - Pneumocystis jirovecii pneumonia [Recovered/Resolved]
  - Rash [Recovered/Resolved]
